FAERS Safety Report 5908820-9 (Version None)
Quarter: 2008Q3

REPORT INFORMATION
  Report Type: 
  Country: None (occurrence: None)
  Receive Date: 20080929
  Receipt Date: 20080916
  Transmission Date: 20090109
  Serious: Yes (Life-Threatening)
  Sender: FDA-Public Use
  Company Number: 20085430

PATIENT
  Sex: Male

DRUGS (1)
  1. LIORESAL [Suspect]
     Indication: MUSCLE SPASTICITY
     Dosage: 210.0 MCG, DAILY, INTRATHECAL
     Route: 037

REACTIONS (3)
  - INTRACRANIAL PRESSURE INCREASED [None]
  - OBSTRUCTION [None]
  - VENTRICULOPERITONEAL SHUNT MALFUNCTION [None]
